FAERS Safety Report 6636544-1 (Version None)
Quarter: 2010Q1

REPORT INFORMATION
  Report Type: 
  Country: None (occurrence: None)
  Receive Date: 20100316
  Receipt Date: 20100309
  Transmission Date: 20100710
  Serious: Yes (Other)
  Sender: FDA-Public Use
  Company Number: BR-B.I. PHARMACEUTICALS,INC./RIDGEFIELD-2010-BR-00226BR

PATIENT
  Sex: Female

DRUGS (4)
  1. ATENSINA [Suspect]
     Indication: HYPERTENSION
     Dates: start: 20030101
  2. ADALAT [Concomitant]
     Indication: HYPERTENSION
     Dates: start: 20030101
  3. ATENOLOL [Concomitant]
     Indication: HYPERTENSION
     Dates: start: 20030101
  4. IMMUNOSUPPRESSIVE DRUG [Concomitant]
     Indication: LIVER TRANSPLANT
     Dates: start: 20030201

REACTIONS (4)
  - HEAD DISCOMFORT [None]
  - HEADACHE [None]
  - HYPERTENSIVE CRISIS [None]
  - MALAISE [None]
